FAERS Safety Report 19457252 (Version 2)
Quarter: 2021Q2

REPORT INFORMATION
  Report Type: Spontaneous
  Country: JP (occurrence: JP)
  Receive Date: 20210624
  Receipt Date: 20210630
  Transmission Date: 20210717
  Serious: Yes (Hospitalization, Other)
  Sender: FDA-Public Use
  Company Number: JP-STRIDES ARCOLAB LIMITED-2021SP006770

PATIENT
  Age: 48 Year
  Sex: Male

DRUGS (14)
  1. DOXORUBICIN [Interacting]
     Active Substance: DOXORUBICIN
     Indication: DIFFUSE LARGE B-CELL LYMPHOMA STAGE IV
     Dosage: 50 MILLIGRAM/SQ. METER, CYCLICAL (DAY 1)
     Route: 065
  2. RITUXAN [Interacting]
     Active Substance: RITUXIMAB
     Indication: EPSTEIN-BARR VIRUS ASSOCIATED LYMPHOMA
  3. PREDNISOLONE. [Suspect]
     Active Substance: PREDNISOLONE
     Indication: DIFFUSE LARGE B-CELL LYMPHOMA STAGE IV
     Dosage: 100 MILLIGRAM, CYCLICAL (DAY 1?5)
     Route: 065
  4. RITUXAN [Interacting]
     Active Substance: RITUXIMAB
     Indication: DIFFUSE LARGE B-CELL LYMPHOMA STAGE IV
     Dosage: 375 MILLIGRAM/SQ. METER, CYCLICAL (DAY 5)
     Route: 065
  5. ONCOVIN [Interacting]
     Active Substance: VINCRISTINE SULFATE
     Indication: EPSTEIN-BARR VIRUS ASSOCIATED LYMPHOMA
  6. GLECAPREVIR [Interacting]
     Active Substance: GLECAPREVIR
     Indication: HEPATITIS
     Dosage: 300 MILLIGRAM PER DAY
     Route: 065
  7. PIBRENTASVIR [Interacting]
     Active Substance: PIBRENTASVIR
     Indication: HEPATITIS
     Dosage: 120 MILLIGRAM PER DAY
     Route: 065
  8. PREDNISOLONE. [Interacting]
     Active Substance: PREDNISOLONE
     Indication: EPSTEIN-BARR VIRUS ASSOCIATED LYMPHOMA
  9. CYCLOPHOSPHAMIDE. [Interacting]
     Active Substance: CYCLOPHOSPHAMIDE
     Indication: DIFFUSE LARGE B-CELL LYMPHOMA STAGE IV
  10. GLECAPREVIR [Interacting]
     Active Substance: GLECAPREVIR
     Indication: HEPATITIS C RNA INCREASED
  11. DOXORUBICIN [Interacting]
     Active Substance: DOXORUBICIN
     Indication: EPSTEIN-BARR VIRUS ASSOCIATED LYMPHOMA
  12. PIBRENTASVIR [Interacting]
     Active Substance: PIBRENTASVIR
     Indication: HEPATITIS C RNA INCREASED
  13. ONCOVIN [Interacting]
     Active Substance: VINCRISTINE SULFATE
     Indication: DIFFUSE LARGE B-CELL LYMPHOMA STAGE IV
     Dosage: 1.4  MILLIGRAM/SQ. METER, CYCLICAL (DAY 1)
     Route: 065
  14. CYCLOPHOSPHAMIDE. [Interacting]
     Active Substance: CYCLOPHOSPHAMIDE
     Indication: EPSTEIN-BARR VIRUS ASSOCIATED LYMPHOMA
     Dosage: 750 MILLIGRAM/SQ. METER, CYCLICAL (DAY 1)
     Route: 065

REACTIONS (3)
  - Hepatitis C RNA increased [Recovered/Resolved]
  - Hepatitis [Recovered/Resolved]
  - Drug interaction [Unknown]
